FAERS Safety Report 24663488 (Version 1)
Quarter: 2024Q4

REPORT INFORMATION
  Report Type: Report from Study
  Country: US (occurrence: US)
  Receive Date: 20241126
  Receipt Date: 20241126
  Transmission Date: 20250115
  Serious: Yes (Hospitalization)
  Sender: BIOGEN
  Company Number: US-BIOGEN-2024BI01291211

PATIENT
  Age: 58 Year
  Sex: Male

DRUGS (1)
  1. TYSABRI [Suspect]
     Active Substance: NATALIZUMAB
     Indication: Multiple sclerosis
     Route: 050
     Dates: start: 20081008

REACTIONS (4)
  - Encephalitis [Unknown]
  - Gout [Unknown]
  - Multiple sclerosis relapse [Unknown]
  - Food poisoning [Unknown]

NARRATIVE: CASE EVENT DATE: 20240701
